FAERS Safety Report 8812076 (Version 2)
Quarter: 2012Q4

REPORT INFORMATION
  Report Type: 
  Country: US (occurrence: US)
  Receive Date: 20120927
  Receipt Date: 20121112
  Transmission Date: 20130627
  Serious: Yes (Death)
  Sender: FDA-Public Use
  Company Number: US-PFIZER INC-2012237398

PATIENT
  Age: 83 Year
  Sex: Male

DRUGS (2)
  1. REVATIO [Suspect]
     Indication: PRIMARY PULMONARY HYPERTENSION
     Dosage: 20 mg, 2x/day
  2. REVATIO [Suspect]
     Dosage: 20 mg, 3x/day
     Route: 048

REACTIONS (1)
  - Death [Fatal]
